FAERS Safety Report 7808920-2 (Version None)
Quarter: 2011Q4

REPORT INFORMATION
  Report Type: 
  Country: None (occurrence: None)
  Receive Date: 20111006
  Receipt Date: 20110920
  Transmission Date: 20120403
  Serious: Yes (Death, Life-Threatening, Hospitalization, Other)
  Sender: FDA-Public Use
  Company Number: 2011MA014188

PATIENT
  Age: 17 Year
  Sex: Female

DRUGS (3)
  1. IBUPROFEN [Suspect]
     Indication: OVERDOSE
     Dosage: 1000 MG;1X;PO
     Route: 048
  2. NAPROXEN [Suspect]
     Indication: OVERDOSE
     Dosage: 7500 MG;1X;PO
     Route: 048
  3. IRON SULPHATE 320MG AND ASCORIC ACID 50MG (NO PREF. NAME) [Suspect]
     Indication: OVERDOSE
     Dosage: 18500 MG;1X;PO
     Route: 048

REACTIONS (29)
  - OVERDOSE [None]
  - HYPERVENTILATION [None]
  - SHOCK [None]
  - HEPATIC ENCEPHALOPATHY [None]
  - RESPIRATORY FAILURE [None]
  - DIARRHOEA [None]
  - HEPATIC NECROSIS [None]
  - PANCREATITIS ACUTE [None]
  - LIVER INJURY [None]
  - HEPATOMEGALY [None]
  - COMA [None]
  - AGGRESSION [None]
  - CIRCULATORY COLLAPSE [None]
  - COMPLETED SUICIDE [None]
  - HAEMODIALYSIS [None]
  - DISORIENTATION [None]
  - GASTRIC ULCER [None]
  - BRONCHOPNEUMONIA [None]
  - HAEMOTHORAX [None]
  - VOMITING [None]
  - FAECES DISCOLOURED [None]
  - HYPOGLYCAEMIA [None]
  - CARDIAC ARREST [None]
  - ACUTE HEPATIC FAILURE [None]
  - METABOLIC ACIDOSIS [None]
  - PULMONARY HAEMORRHAGE [None]
  - ABDOMINAL PAIN [None]
  - RENAL FAILURE [None]
  - AGITATION [None]
